FAERS Safety Report 26054647 (Version 1)
Quarter: 2025Q4

REPORT INFORMATION
  Report Type: Spontaneous
  Country: US (occurrence: US)
  Receive Date: 20251117
  Receipt Date: 20251117
  Transmission Date: 20260117
  Serious: No
  Sender: TAKEDA
  Company Number: US-TAKEDA-2025TUS102925

PATIENT
  Age: 54 Year
  Sex: Female
  Weight: 51.701 kg

DRUGS (11)
  1. TAKHZYRO [Suspect]
     Active Substance: LANADELUMAB-FLYO
     Indication: Immune system disorder
     Dosage: 300 MILLIGRAM, Q2WEEKS
     Dates: start: 20220614
  2. RUCONEST [Concomitant]
     Active Substance: CONESTAT ALFA
  3. JARDIANCE [Concomitant]
     Active Substance: EMPAGLIFLOZIN
  4. RETACRIT [Concomitant]
     Active Substance: EPOETIN ALFA-EPBX
  5. SYNTHROID [Concomitant]
     Active Substance: LEVOTHYROXINE SODIUM
  6. GABAPENTIN [Concomitant]
     Active Substance: GABAPENTIN
  7. FUROSEMIDE [Concomitant]
     Active Substance: FUROSEMIDE
  8. IRBESARTAN [Concomitant]
     Active Substance: IRBESARTAN
  9. CLONIDINE [Concomitant]
     Active Substance: CLONIDINE
  10. HYDRALAZINE [Concomitant]
     Active Substance: HYDRALAZINE HYDROCHLORIDE
  11. SPIRONOLACTONE [Concomitant]
     Active Substance: SPIRONOLACTONE

REACTIONS (1)
  - Hereditary angioedema [Recovered/Resolved]
